FAERS Safety Report 20448272 (Version 1)
Quarter: 2022Q1

REPORT INFORMATION
  Report Type: Report from Study
  Country: RO (occurrence: RO)
  Receive Date: 20220209
  Receipt Date: 20220209
  Transmission Date: 20220423
  Serious: Yes (Death)
  Sender: FDA-Public Use
  Company Number: RO-ABBVIE-22K-135-4269550-00

PATIENT
  Age: 74 Year
  Sex: Male

DRUGS (7)
  1. CARBIDOPA\LEVODOPA [Suspect]
     Active Substance: CARBIDOPA\LEVODOPA
     Indication: Parkinson^s disease
     Dosage: DM=8.50 DC=3.00 ED=1.80 NRED=0; DMN=0.00 DCN=0.00 EDN=0.00 NREDN=0
     Route: 050
     Dates: start: 20180301, end: 20220206
  2. CARBIDOPA\LEVODOPA [Suspect]
     Active Substance: CARBIDOPA\LEVODOPA
  3. CLOZAPINE [Concomitant]
     Active Substance: CLOZAPINE
     Indication: Parkinson^s disease
     Dosage: IN THE EVENING
     Route: 048
  4. TRAZODONE HYDROCHLORIDE [Concomitant]
     Active Substance: TRAZODONE HYDROCHLORIDE
     Indication: Dementia
     Dosage: IN THE EVENING
     Route: 048
  5. AZILECT [Concomitant]
     Active Substance: RASAGILINE MESYLATE
     Indication: Parkinson^s disease
     Dosage: IN THE MORNING
     Route: 048
  6. MEMANTINE [Concomitant]
     Active Substance: MEMANTINE
     Indication: Dementia
     Route: 048
  7. EXELON [Concomitant]
     Active Substance: RIVASTIGMINE TARTRATE
     Indication: Dementia
     Dosage: IN THE EVENING
     Route: 048

REACTIONS (2)
  - Cardio-respiratory arrest [Fatal]
  - COVID-19 [Fatal]

NARRATIVE: CASE EVENT DATE: 20220206
